FAERS Safety Report 16301968 (Version 5)
Quarter: 2019Q3

REPORT INFORMATION
  Report Type: Report from Study
  Country: PE (occurrence: PE)
  Receive Date: 20190512
  Receipt Date: 20190920
  Transmission Date: 20191004
  Serious: Yes (Death, Hospitalization, Other)
  Sender: FDA-Public Use
  Company Number: PHHY2019PE059460

PATIENT
  Age: 74 Year
  Sex: Male
  Weight: 64 kg

DRUGS (8)
  1. OMEPRAZOLE. [Concomitant]
     Active Substance: OMEPRAZOLE
     Indication: PRODUCT USED FOR UNKNOWN INDICATION
     Route: 065
  2. SANDOSTATIN LAR DEPOT [Suspect]
     Active Substance: OCTREOTIDE ACETATE
     Dosage: 30 MG, QMO ( (EVERY 28 DAYS))
     Route: 030
     Dates: end: 20190409
  3. DEXAMETHASONE. [Concomitant]
     Active Substance: DEXAMETHASONE
     Indication: PRODUCT USED FOR UNKNOWN INDICATION
     Dosage: 3 DF, QD
     Route: 065
     Dates: end: 20190812
  4. SANDOSTATIN LAR DEPOT [Suspect]
     Active Substance: OCTREOTIDE ACETATE
     Indication: NEUROENDOCRINE TUMOUR
     Dosage: 30 MG, QMO (EVERY 28 DAYS)
     Route: 030
     Dates: start: 20180319
  5. SANDOSTATIN LAR DEPOT [Suspect]
     Active Substance: OCTREOTIDE ACETATE
     Dosage: 30 MG, (EVERY 28 DAYS)
     Route: 030
     Dates: start: 20180611, end: 20190313
  6. TAMSULOSIN [Concomitant]
     Active Substance: TAMSULOSIN
     Indication: PRODUCT USED FOR UNKNOWN INDICATION
     Dosage: 0.4 G, QD (DAILY)
     Route: 065
  7. AFINITOR [Suspect]
     Active Substance: EVEROLIMUS
     Indication: NEUROENDOCRINE TUMOUR
     Dosage: 10 MG, QD
     Route: 048
     Dates: start: 20190402
  8. DEXAMETHASONE. [Concomitant]
     Active Substance: DEXAMETHASONE
     Dosage: 2 DF, UNK
     Route: 065
     Dates: start: 20190813

REACTIONS (26)
  - Escherichia infection [Recovering/Resolving]
  - Fluid retention [Recovering/Resolving]
  - Syncope [Not Recovered/Not Resolved]
  - Renal impairment [Unknown]
  - Discomfort [Recovering/Resolving]
  - Fall [Fatal]
  - Vomiting [Recovering/Resolving]
  - Pyrexia [Recovering/Resolving]
  - Loss of consciousness [Not Recovered/Not Resolved]
  - Renal cancer [Not Recovered/Not Resolved]
  - Cerebrovascular accident [Fatal]
  - Aggression [Not Recovered/Not Resolved]
  - Poor quality sleep [Not Recovered/Not Resolved]
  - Tumour haemorrhage [Not Recovered/Not Resolved]
  - Mouth injury [Recovering/Resolving]
  - Urinary tract infection [Recovering/Resolving]
  - Brain injury [Fatal]
  - Eating disorder [Fatal]
  - Feeling abnormal [Recovering/Resolving]
  - Abdominal pain [Recovering/Resolving]
  - Weight decreased [Recovering/Resolving]
  - Deafness [Not Recovered/Not Resolved]
  - Aphasia [Fatal]
  - Movement disorder [Fatal]
  - Haemoglobin decreased [Recovering/Resolving]
  - Gait disturbance [Not Recovered/Not Resolved]

NARRATIVE: CASE EVENT DATE: 20190226
